FAERS Safety Report 7631367-9 (Version None)
Quarter: 2011Q3

REPORT INFORMATION
  Report Type: 
  Country: None (occurrence: None)
  Receive Date: 20110725
  Receipt Date: 20110714
  Transmission Date: 20111222
  Serious: Yes (Hospitalization, Other)
  Sender: FDA-Public Use
  Company Number: US-BAYER-201034300NA

PATIENT
  Age: 26 Year
  Sex: Female
  Weight: 58.05 kg

DRUGS (11)
  1. VITAMIN B COMPLEX CAP [Concomitant]
     Dosage: UNK UNK, OM
  2. NEXIUM [Concomitant]
  3. YASMIN [Suspect]
     Dosage: UNK
     Route: 048
     Dates: start: 20050709, end: 20060501
  4. YAZ [Suspect]
     Indication: CONTRACEPTION
     Dosage: UNK
     Route: 048
     Dates: start: 20070928, end: 20100601
  5. IBUPROFEN [Concomitant]
     Indication: HEADACHE
  6. MAALOX [Concomitant]
     Indication: GASTROOESOPHAGEAL REFLUX DISEASE
     Dosage: UNK UNK, PRN
  7. ROLAIDS [Concomitant]
     Indication: GASTROOESOPHAGEAL REFLUX DISEASE
     Dosage: UNK UNK, PRN
  8. YASMIN [Suspect]
     Indication: CONTRACEPTION
     Dosage: UNK
     Route: 048
     Dates: start: 20040507, end: 20050301
  9. YASMIN [Suspect]
     Dosage: UNK
     Route: 048
     Dates: start: 20070401, end: 20070701
  10. STAHIST [Concomitant]
     Indication: MULTIPLE ALLERGIES
     Dosage: UNK
     Dates: start: 20081201
  11. IBUPROFEN [Concomitant]
     Indication: PAIN
     Dosage: 250 MG, PRN

REACTIONS (9)
  - OESOPHAGEAL SPASM [None]
  - NAUSEA [None]
  - CHOLECYSTITIS CHRONIC [None]
  - SENSATION OF FOREIGN BODY [None]
  - GALLBLADDER INJURY [None]
  - PAIN [None]
  - CHOLELITHIASIS [None]
  - GASTROOESOPHAGEAL REFLUX DISEASE [None]
  - CHOLECYSTITIS ACUTE [None]
